FAERS Safety Report 15314498 (Version 1)
Quarter: 2018Q3

REPORT INFORMATION
  Report Type: Spontaneous
  Country: BR (occurrence: BR)
  Receive Date: 20180824
  Receipt Date: 20180824
  Transmission Date: 20181010
  Serious: Yes (Hospitalization, Other)
  Sender: FDA-Public Use
  Company Number: BR-AMGEN-BRASP2018116423

PATIENT
  Age: 39 Year
  Sex: Female
  Weight: 60 kg

DRUGS (10)
  1. NEUPOGEN [Suspect]
     Active Substance: FILGRASTIM
     Indication: FEBRILE NEUTROPENIA
     Dosage: 300 MUG, UNK (FIRST CYCLE? 3 DAYS)
     Route: 058
     Dates: start: 201806
  2. NEUPOGEN [Suspect]
     Active Substance: FILGRASTIM
     Indication: WHITE BLOOD CELL COUNT ABNORMAL
     Dosage: 300 MUG, UNK (SECOND CYCLE? 3 DAYS)
     Route: 058
     Dates: start: 201807
  3. NEUPOGEN [Suspect]
     Active Substance: FILGRASTIM
     Dosage: 300 MUG, UNK (D2 TO D6 THIRD CYCLE)
     Route: 058
     Dates: start: 20180714, end: 20180718
  4. NEULASTA [Suspect]
     Active Substance: PEGFILGRASTIM
     Dosage: 6 MG, UNK (SECOND CYCLE)
     Route: 058
     Dates: start: 20180630
  5. FAULDOXO [Concomitant]
     Active Substance: DOXORUBICIN HYDROCHLORIDE
     Indication: BREAST CANCER FEMALE
     Dosage: 98.28 MG,(SF 50ML?15 MIN INFUSION) (2ND 29/6/18; 3RD 13/7/18 (15% DOSE REDUCTION); 4TH 03/8/18 (15%
     Route: 042
     Dates: start: 20180615
  6. CLAVULIN [Concomitant]
     Active Substance: AMOXICILLIN\CLAVULANIC ACID
     Dosage: 7 DAYS OF ANTIBIOTIC THERAPY AFTER DISCHARGE
     Route: 048
     Dates: start: 201806
  7. NEUPOGEN [Suspect]
     Active Substance: FILGRASTIM
     Dosage: 300 MUG, UNK (FOR TWO DAYS)
     Route: 058
     Dates: start: 201807
  8. NEULASTA [Suspect]
     Active Substance: PEGFILGRASTIM
     Indication: PRODUCT USED FOR UNKNOWN INDICATION
     Dosage: 6 MG, UNK (FIRST CYCLE)
     Route: 058
     Dates: start: 20180616
  9. GENUXAL [Concomitant]
     Active Substance: CYCLOPHOSPHAMIDE
     Indication: BREAST CANCER FEMALE
     Dosage: 982.8 MG,(SF 250ML 40 MIN INFUSION) (2ND 29/6/18; 3RD 13/7/18 (15% DOSE REDUCTION); 4TH 03/8/18 (15%
     Route: 042
     Dates: start: 20180615
  10. NEUPOGEN [Suspect]
     Active Substance: FILGRASTIM
     Dosage: 300 MUG, UNK (FOURTH CYCLE? 7 DAYS)
     Route: 058
     Dates: start: 20180804, end: 20180810

REACTIONS (6)
  - Pyrexia [Recovered/Resolved]
  - Febrile neutropenia [Recovered/Resolved]
  - Phlebitis [Recovered/Resolved]
  - Mucosal inflammation [Recovered/Resolved]
  - White blood cell count abnormal [Recovered/Resolved]
  - Hyperaemia [Recovered/Resolved]

NARRATIVE: CASE EVENT DATE: 201806
